FAERS Safety Report 18157980 (Version 1)
Quarter: 2020Q3

REPORT INFORMATION
  Report Type: Spontaneous
  Country: US (occurrence: US)
  Receive Date: 20200817
  Receipt Date: 20200817
  Transmission Date: 20201103
  Serious: No
  Sender: FDA-Public Use
  Company Number: US-MEDEXUS PHARMA, INC.-2019MED00190

PATIENT
  Age: 9 Year
  Sex: Female
  Weight: 64.4 kg

DRUGS (5)
  1. RASUVO [Suspect]
     Active Substance: METHOTREXATE SODIUM
     Indication: AUTOIMMUNE DISORDER
  2. LOTEMAX [Concomitant]
     Active Substance: LOTEPREDNOL ETABONATE
     Indication: UVEITIS
     Route: 047
  3. RASUVO [Suspect]
     Active Substance: METHOTREXATE SODIUM
     Indication: UVEITIS
     Dosage: 25 MG, 1X/WEEK (TYPICALLY ON SATURDAYS)
     Route: 058
  4. FOLIC ACID. [Concomitant]
     Active Substance: FOLIC ACID
     Dosage: 2 MG, 2X/DAY
     Route: 048
  5. PAZEO [Concomitant]
     Active Substance: OLOPATADINE HYDROCHLORIDE
     Indication: UVEITIS
     Route: 047

REACTIONS (4)
  - Accidental exposure to product [Recovered/Resolved]
  - Device failure [Recovered/Resolved]
  - Abdominal pain upper [Unknown]
  - Product use in unapproved indication [Not Recovered/Not Resolved]

NARRATIVE: CASE EVENT DATE: 20190804
